FAERS Safety Report 24445100 (Version 1)
Quarter: 2024Q4

REPORT INFORMATION
  Report Type: Other
  Country: AU (occurrence: AU)
  Receive Date: 20241016
  Receipt Date: 20241016
  Transmission Date: 20250115
  Serious: Yes (Other)
  Sender: BIOCON
  Company Number: AU-BIOCON BIOLOGICS LIMITED-BBL2024007483

PATIENT

DRUGS (4)
  1. ADALIMUMAB [Suspect]
     Active Substance: ADALIMUMAB
     Indication: Product used for unknown indication
     Dosage: UNK
     Route: 065
  2. AZATHIOPRINE [Concomitant]
     Active Substance: AZATHIOPRINE
     Indication: Product used for unknown indication
     Dosage: UNK
     Route: 065
  3. CIPROFLOXACIN [Concomitant]
     Active Substance: CIPROFLOXACIN
     Indication: Product used for unknown indication
     Dosage: UNK
     Route: 065
  4. PREDNISOLONE [Concomitant]
     Active Substance: PREDNISOLONE
     Indication: Product used for unknown indication
     Dosage: UNK
     Route: 065

REACTIONS (15)
  - Sepsis [Unknown]
  - Anal abscess [Unknown]
  - Abnormal faeces [Unknown]
  - Anal erythema [Unknown]
  - Anal fistula [Unknown]
  - Excessive granulation tissue [Unknown]
  - Induration [Unknown]
  - Medical device site discomfort [Unknown]
  - Pain [Unknown]
  - Purulent discharge [Unknown]
  - Rectal tenesmus [Unknown]
  - Swelling [Unknown]
  - Tenderness [Unknown]
  - Drug ineffective [Unknown]
  - Device dislocation [Unknown]
